FAERS Safety Report 24141057 (Version 2)
Quarter: 2024Q3

REPORT INFORMATION
  Report Type: Spontaneous
  Country: IT (occurrence: IT)
  Receive Date: 20240726
  Receipt Date: 20240807
  Transmission Date: 20241016
  Serious: Yes (Other)
  Sender: AUROBINDO
  Company Number: IT-MLMSERVICE-20240410-PI000180-00320-2

PATIENT
  Age: 78 Year
  Sex: Male

DRUGS (10)
  1. QUETIAPINE [Suspect]
     Active Substance: QUETIAPINE
     Indication: Chorea
     Dosage: UNK (LOW DOSE)
     Route: 065
  2. QUETIAPINE [Suspect]
     Active Substance: QUETIAPINE
     Indication: Ballismus
  3. TOPIRAMATE [Suspect]
     Active Substance: TOPIRAMATE
     Indication: Chorea
     Dosage: UNK (DOSE TITRATION WAS FURTHER LIMITED)
     Route: 065
  4. TOPIRAMATE [Suspect]
     Active Substance: TOPIRAMATE
     Indication: Ballismus
     Dosage: 12.5 MILLIGRAM, ONCE A DAY (IT WAS GRADUALLY TITRATED UP TO 37.5MG/DAY)
     Route: 065
  5. CLONAZEPAM [Suspect]
     Active Substance: CLONAZEPAM
     Indication: Chorea
     Dosage: UNK (LOW DOSE)
     Route: 065
  6. CLONAZEPAM [Suspect]
     Active Substance: CLONAZEPAM
     Indication: Ballismus
  7. TETRABENAZINE [Suspect]
     Active Substance: TETRABENAZINE
     Indication: Chorea
     Dosage: UNK (LOW DOSE)
     Route: 065
  8. TETRABENAZINE [Suspect]
     Active Substance: TETRABENAZINE
     Indication: Ballismus
  9. LEVODOPA [Concomitant]
     Active Substance: LEVODOPA
     Indication: Vascular parkinsonism
     Dosage: 400 MILLIGRAM, ONCE A DAY
     Route: 065
  10. LEVODOPA [Concomitant]
     Active Substance: LEVODOPA
     Dosage: 150 MILLIGRAM, ONCE A DAY
     Route: 065

REACTIONS (2)
  - Drug ineffective [Unknown]
  - Sedation [Unknown]
